FAERS Safety Report 11360312 (Version 1)
Quarter: 2015Q3

REPORT INFORMATION
  Report Type: Report from Study
  Country: US (occurrence: US)
  Receive Date: 20150810
  Receipt Date: 20150810
  Transmission Date: 20151125
  Serious: Yes (Other)
  Sender: FDA-Public Use
  Company Number: PHEH2014US009826

PATIENT
  Age: 31 Year
  Sex: Female
  Weight: 78.6 kg

DRUGS (6)
  1. ALBUTEROL. [Concomitant]
     Active Substance: ALBUTEROL
     Indication: WHEEZING
     Dosage: 2 PUFFS EVERY 6 HOURS, PRN (WHEN REQUIRED)
     Route: 055
     Dates: start: 20110208
  2. EXTAVIA [Suspect]
     Active Substance: INTERFERON BETA-1B
     Dosage: 0.25 MG (1 ML), QOD
     Route: 058
     Dates: start: 20140421
  3. FLUTICASONE [Concomitant]
     Active Substance: FLUTICASONE\FLUTICASONE PROPIONATE
     Indication: RHINITIS ALLERGIC
     Dosage: 2 DF, QD
     Route: 045
     Dates: start: 20080905
  4. EXTAVIA [Suspect]
     Active Substance: INTERFERON BETA-1B
     Indication: MULTIPLE SCLEROSIS
     Dosage: 0.125 MG, QOD
     Route: 058
  5. EXTAVIA [Suspect]
     Active Substance: INTERFERON BETA-1B
     Dosage: 0.3 MG, QD (DAILY)
     Route: 058
     Dates: start: 20140418
  6. MICROGESTIN [Concomitant]
     Active Substance: ETHINYL ESTRADIOL\NORETHINDRONE ACETATE
     Indication: ORAL CONTRACEPTION
     Dosage: 1.5/30/28, DAILY
     Route: 048
     Dates: start: 20011208

REACTIONS (9)
  - Thrombocytopenia [Not Recovered/Not Resolved]
  - Erythema [Not Recovered/Not Resolved]
  - Chills [Recovering/Resolving]
  - Leukopenia [Not Recovered/Not Resolved]
  - Contusion [Recovering/Resolving]
  - Injection site reaction [Recovering/Resolving]
  - Influenza like illness [Recovering/Resolving]
  - Fatigue [Recovering/Resolving]
  - Headache [Recovering/Resolving]

NARRATIVE: CASE EVENT DATE: 20140418
